FAERS Safety Report 7529319-2 (Version None)
Quarter: 2011Q2

REPORT INFORMATION
  Report Type: 
  Country: None (occurrence: None)
  Receive Date: 20110607
  Receipt Date: 20050404
  Transmission Date: 20111010
  Serious: Yes (Death)
  Sender: FDA-Public Use
  Company Number: PHHO2005ES05614

PATIENT
  Sex: Female

DRUGS (2)
  1. EXELON [Suspect]
     Dates: start: 20020603, end: 20031202
  2. METFORMIN HCL [Concomitant]

REACTIONS (1)
  - CEREBROVASCULAR ACCIDENT [None]
